FAERS Safety Report 23041964 (Version 1)
Quarter: 2023Q4

REPORT INFORMATION
  Report Type: Other
  Country: None (occurrence: AT)
  Receive Date: 20231007
  Receipt Date: 20231007
  Transmission Date: 20240110
  Serious: Yes (Hospitalization, Other)
  Sender: FDA-Public Use
  Company Number: AT-The ACME Laboratories Ltd-2146783

PATIENT
  Age: 31 Year
  Sex: Female

DRUGS (6)
  1. ZOLPIDEM TARTRATE [Suspect]
     Active Substance: ZOLPIDEM TARTRATE
     Indication: Product used for unknown indication
     Route: 065
  2. TIZANIDINE [Suspect]
     Active Substance: TIZANIDINE
     Route: 065
  3. LEVOMETHADONE [Suspect]
     Active Substance: LEVOMETHADONE
     Route: 065
  4. MIRTAZAPINE [Suspect]
     Active Substance: MIRTAZAPINE
     Route: 065
  5. TOFACITINIB [Suspect]
     Active Substance: TOFACITINIB
     Route: 065
  6. CEFOTAXIME [Suspect]
     Active Substance: CEFOTAXIME SODIUM
     Route: 065

REACTIONS (2)
  - Pancreatitis [Recovered/Resolved]
  - Thrombotic microangiopathy [Recovered/Resolved]
